FAERS Safety Report 10281964 (Version 4)
Quarter: 2014Q4

REPORT INFORMATION
  Report Type: Report from Study
  Country: GR (occurrence: GR)
  Receive Date: 20140707
  Receipt Date: 20141110
  Transmission Date: 20150528
  Serious: Yes (Death, Hospitalization, Other)
  Sender: FDA-Public Use
  Company Number: PHHY2014GR083214

PATIENT
  Age: 52 Year
  Sex: Female
  Weight: 58 kg

DRUGS (1)
  1. GILENYA [Suspect]
     Active Substance: FINGOLIMOD HYDROCHLORIDE
     Indication: RELAPSING-REMITTING MULTIPLE SCLEROSIS
     Dosage: 0.5 MG, UNK
     Route: 048
     Dates: start: 20130130, end: 20140518

REACTIONS (5)
  - Sepsis [Fatal]
  - Ileus [Not Recovered/Not Resolved]
  - Enterocolitis [Fatal]
  - Intestinal adenocarcinoma [Fatal]
  - Leukopenia [Fatal]

NARRATIVE: CASE EVENT DATE: 20140518
